FAERS Safety Report 25808145 (Version 1)
Quarter: 2025Q3

REPORT INFORMATION
  Report Type: Spontaneous
  Country: TR (occurrence: TR)
  Receive Date: 20250916
  Receipt Date: 20250916
  Transmission Date: 20251021
  Serious: Yes (Other)
  Sender: GILEAD
  Company Number: TR-GILEAD-2025-0728060

PATIENT
  Age: 45 Year
  Sex: Female

DRUGS (4)
  1. TRODELVY [Suspect]
     Active Substance: SACITUZUMAB GOVITECAN-HZIY
     Indication: Triple negative breast cancer
     Route: 065
     Dates: start: 202311, end: 202401
  2. TRODELVY [Suspect]
     Active Substance: SACITUZUMAB GOVITECAN-HZIY
     Route: 065
     Dates: start: 20240307, end: 20240430
  3. GEMCITABINE [Concomitant]
     Active Substance: GEMCITABINE
     Dates: start: 202303, end: 202309
  4. CARBOPLATIN [Concomitant]
     Active Substance: CARBOPLATIN
     Dates: start: 202311, end: 202401

REACTIONS (4)
  - Disease progression [Unknown]
  - Neutropenia [Unknown]
  - Malaise [Unknown]
  - Constipation [Unknown]
